FAERS Safety Report 13191418 (Version 1)
Quarter: 2017Q1

REPORT INFORMATION
  Report Type: Spontaneous
  Country: CA (occurrence: CA)
  Receive Date: 20170207
  Receipt Date: 20170207
  Transmission Date: 20170428
  Serious: Yes (Death)
  Sender: FDA-Public Use
  Company Number: CA-TEVA-736084ACC

PATIENT
  Age: 77 Year
  Sex: Male
  Weight: 102 kg

DRUGS (4)
  1. LOPERAMIDE [Suspect]
     Active Substance: LOPERAMIDE
     Indication: DIARRHOEA
     Dosage: 4 MILLIGRAM DAILY;
  2. FLORASTOR [Concomitant]
     Active Substance: SACCHAROMYCES CEREVISIAE
  3. INSULIN [Concomitant]
     Active Substance: INSULIN NOS
  4. HYDROMORPHONE [Concomitant]
     Active Substance: HYDROMORPHONE

REACTIONS (2)
  - Ileus paralytic [Fatal]
  - Colonic pseudo-obstruction [Fatal]
